FAERS Safety Report 18252804 (Version 2)
Quarter: 2020Q3

REPORT INFORMATION
  Report Type: Spontaneous
  Country: US (occurrence: US)
  Receive Date: 20200910
  Receipt Date: 20200923
  Transmission Date: 20201103
  Serious: No
  Sender: FDA-Public Use
  Company Number: US-ASTRAZENECA-2020SF11432

PATIENT
  Age: 78 Year
  Sex: Female

DRUGS (1)
  1. BRILINTA [Suspect]
     Active Substance: TICAGRELOR
     Indication: AORTIC STENT INSERTION
     Dosage: TWO TIMES A DAY
     Route: 048
     Dates: start: 202001

REACTIONS (4)
  - Diverticulitis [Unknown]
  - Vaginal odour [Unknown]
  - Contusion [Not Recovered/Not Resolved]
  - Condition aggravated [Unknown]

NARRATIVE: CASE EVENT DATE: 2019
